FAERS Safety Report 13705721 (Version 3)
Quarter: 2017Q3

REPORT INFORMATION
  Report Type: Spontaneous
  Country: PT (occurrence: PT)
  Receive Date: 20170630
  Receipt Date: 20170811
  Transmission Date: 20171127
  Serious: Yes (Hospitalization, Other)
  Sender: FDA-Public Use
  Company Number: PT-NAPPMUNDI-GBR-2017-0046231

PATIENT
  Age: 85 Year
  Sex: Female

DRUGS (5)
  1. ETODOLAC. [Concomitant]
     Active Substance: ETODOLAC
     Dosage: UNK
  2. FLEXIBAN [Concomitant]
     Dosage: UNK
  3. TARGIN [Suspect]
     Active Substance: NALOXONE HYDROCHLORIDE\OXYCODONE HYDROCHLORIDE
     Indication: PAIN
     Dosage: 20 MG, DAILY [(2X5 MG/10 MG 2X/DAY, AT BREAKFAST AND AT DINNER, STRENGHT 10/5MG]
     Route: 048
  4. LYRICA [Interacting]
     Active Substance: PREGABALIN
     Indication: SCIATICA
     Dosage: 75 MG, BID
     Route: 048
     Dates: end: 20170619
  5. LYRICA [Interacting]
     Active Substance: PREGABALIN
     Dosage: 75 MG, NOCTE [75 MG STRENGTH] [1X/DAY AT NIGHT]
     Route: 048

REACTIONS (14)
  - Renal function test abnormal [Unknown]
  - Agitation [Not Recovered/Not Resolved]
  - Fall [Not Recovered/Not Resolved]
  - Drug interaction [Not Recovered/Not Resolved]
  - Hallucination [Not Recovered/Not Resolved]
  - Urinary retention [Not Recovered/Not Resolved]
  - General physical health deterioration [Unknown]
  - Condition aggravated [Unknown]
  - Dehydration [Unknown]
  - Intentional product use issue [Not Recovered/Not Resolved]
  - Diplopia [Not Recovered/Not Resolved]
  - Spinal fracture [Unknown]
  - Delirium [Not Recovered/Not Resolved]
  - Somnolence [Not Recovered/Not Resolved]
